FAERS Safety Report 14006067 (Version 4)
Quarter: 2017Q4

REPORT INFORMATION
  Report Type: Spontaneous
  Country: JP (occurrence: JP)
  Receive Date: 20170924
  Receipt Date: 20171101
  Transmission Date: 20180321
  Serious: No
  Sender: FDA-Public Use
  Company Number: PHJP2017JP029053

PATIENT
  Age: 5 Month
  Sex: Female
  Weight: 5 kg

DRUGS (3)
  1. NEORAL [Suspect]
     Active Substance: CYCLOSPORINE
     Dosage: 70 MG, UNK
     Route: 048
     Dates: start: 20170920
  2. NEORAL [Suspect]
     Active Substance: CYCLOSPORINE
     Dosage: 3.8 MG/KG, UNK
     Route: 048
  3. NEORAL [Suspect]
     Active Substance: CYCLOSPORINE
     Indication: AUTOIMMUNE DISORDER
     Dosage: 38 MG/KG (210 MG (IN 3 DIVIDED DOSES)), UNK
     Route: 048
     Dates: start: 20170919

REACTIONS (5)
  - Overdose [Recovered/Resolved]
  - Vomiting [Unknown]
  - Product use in unapproved indication [Unknown]
  - Immunosuppressant drug level increased [Unknown]
  - Nausea [Unknown]

NARRATIVE: CASE EVENT DATE: 20170919
